FAERS Safety Report 11614203 (Version 1)
Quarter: 2015Q4

REPORT INFORMATION
  Report Type: Report from Study
  Country: VE (occurrence: VE)
  Receive Date: 20151008
  Receipt Date: 20151008
  Transmission Date: 20160304
  Serious: Yes (Other)
  Sender: FDA-Public Use
  Company Number: PHHY2015VE121257

PATIENT
  Sex: Female

DRUGS (2)
  1. AFINITOR [Suspect]
     Active Substance: EVEROLIMUS
     Dosage: 10 MG, QD
     Route: 048
  2. AFINITOR [Suspect]
     Active Substance: EVEROLIMUS
     Indication: BREAST CANCER
     Dosage: 20 MG, QD
     Route: 048
     Dates: start: 201502, end: 2015

REACTIONS (5)
  - Chest injury [Recovering/Resolving]
  - Malaise [Recovering/Resolving]
  - Hypophagia [Recovering/Resolving]
  - Wound secretion [Recovering/Resolving]
  - Drug intolerance [Unknown]
